FAERS Safety Report 25950211 (Version 1)
Quarter: 2025Q4

REPORT INFORMATION
  Report Type: Report from Study
  Country: EU (occurrence: EU)
  Receive Date: 20251022
  Receipt Date: 20251022
  Transmission Date: 20260118
  Serious: Yes (Hospitalization)
  Sender: ABBVIE
  Company Number: EU-ABBVIE-6512921

PATIENT
  Age: 73 Year
  Sex: Male

DRUGS (5)
  1. FOSCARBIDOPA\FOSLEVODOPA [Suspect]
     Active Substance: FOSCARBIDOPA\FOSLEVODOPA
     Indication: Parkinson^s disease
     Dosage: SLOW 0,28 ML/H (USED AT NIGHT), BASE 0,36 ML/H (NOT USED AT ALL), HIGH 0,38 ML/H (USED DURING THE...
     Route: 058
     Dates: start: 20250617
  2. Panadol forte [Concomitant]
     Indication: Product used for unknown indication
     Dosage: TIME INTERVAL: 0.33333333 DAYS
  3. Madopar Quick [Concomitant]
     Indication: Parkinson^s disease
     Dosage: 100/125, 1/2 TO 1 TABLET 1 TO 2 TIMES A DAY, WHEN NECESSARY
     Dates: start: 202510
  4. CALCIUM\CHOLECALCIFEROL [Concomitant]
     Active Substance: CALCIUM\CHOLECALCIFEROL
     Indication: Product used for unknown indication
     Dosage: 1X2
  5. Hypotron [Concomitant]
     Indication: Hypotension

REACTIONS (7)
  - Musculoskeletal disorder [Recovering/Resolving]
  - Therapeutic product effect incomplete [Not Recovered/Not Resolved]
  - Mobility decreased [Not Recovered/Not Resolved]
  - Gait inability [Recovering/Resolving]
  - Infusion site erythema [Recovering/Resolving]
  - Infusion site induration [Recovering/Resolving]
  - Freezing phenomenon [Unknown]

NARRATIVE: CASE EVENT DATE: 20250101
